FAERS Safety Report 4306994-7 (Version None)
Quarter: 2004Q1

REPORT INFORMATION
  Report Type: 
  Country: None (occurrence: None)
  Receive Date: 20040225
  Receipt Date: 20040216
  Transmission Date: 20041129
  Serious: Yes (Life-Threatening)
  Sender: FDA-Public Use
  Company Number: GB-JNJFOC-20040203716

PATIENT
  Age: 60 Year
  Sex: Male

DRUGS (6)
  1. TRAMADOL HCL [Suspect]
     Indication: ANALGESIC EFFECT
     Dosage: 50 MG, 2 IN 1 DAY; ORAL
     Route: 048
     Dates: start: 20040122, end: 20040122
  2. PARACETAMOL (UNSPECIFIED) [Concomitant]
  3. IBUPROFEN (UNSPECIFIED) [Concomitant]
  4. ASPIRIN [Concomitant]
  5. BUPIVACAINE [Concomitant]
  6. CLONIDINE [Concomitant]

REACTIONS (4)
  - CHEST DISCOMFORT [None]
  - OEDEMA MOUTH [None]
  - PARAESTHESIA ORAL [None]
  - URTICARIA [None]
